FAERS Safety Report 5019433-8 (Version None)
Quarter: 2006Q2

REPORT INFORMATION
  Report Type: 
  Country: None (occurrence: None)
  Receive Date: 20060531
  Receipt Date: 20060519
  Transmission Date: 20061013
  Serious: No
  Sender: FDA-Public Use
  Company Number: 2006-142899-NL

PATIENT
  Age: 84 Year
  Sex: Male

DRUGS (12)
  1. MIRTAZAPINE [Suspect]
     Dosage: 15 MG QD INTRAVENOUS DRIP
     Route: 041
     Dates: start: 20060220, end: 20060224
  2. ATORVASTATIN CALCIUM [Suspect]
     Indication: ARTERIOSCLEROSIS
     Dosage: 40 MG QD ORAL
     Route: 048
     Dates: start: 20050101, end: 20060220
  3. LISINOPRIL [Suspect]
     Dosage: DF/20 MG QD ORAL
     Route: 048
     Dates: start: 20050501, end: 20060220
  4. LISINOPRIL [Suspect]
     Dosage: DF/20 MG QD ORAL
     Route: 048
     Dates: start: 20060223, end: 20060224
  5. GLIMEPIRIDE [Suspect]
     Dosage: 2 MG QD ORAL
     Route: 048
     Dates: end: 20060222
  6. ACETYLSALICYLIC ACID SRT [Concomitant]
  7. SPIRONOLACTONE [Concomitant]
  8. CARVEDILOL [Concomitant]
  9. TORASEMIDE SODIUM [Concomitant]
  10. MOLSIDOMINE [Concomitant]
  11. CLOMETHIAZOLE EDISILATE [Concomitant]
  12. CAPTOPRIL [Concomitant]

REACTIONS (5)
  - ACUTE CORONARY SYNDROME [None]
  - ALANINE AMINOTRANSFERASE INCREASED [None]
  - ASPARTATE AMINOTRANSFERASE INCREASED [None]
  - BLOOD CREATININE INCREASED [None]
  - RHABDOMYOLYSIS [None]
